FAERS Safety Report 6220197-0 (Version None)
Quarter: 2009Q2

REPORT INFORMATION
  Report Type: 
  Country: None (occurrence: None)
  Receive Date: 20090605
  Receipt Date: 20090526
  Transmission Date: 20091009
  Serious: Yes (Hospitalization)
  Sender: FDA-Public Use
  Company Number: AU-GDP-09405994

PATIENT
  Sex: Female

DRUGS (1)
  1. BENZAC AC 5% (BENZOYL PEROXIDE) GEL [Suspect]
     Indication: ACNE
     Dosage: TOPICAL
     Route: 061

REACTIONS (3)
  - APPLICATION SITE SWELLING [None]
  - PHARYNGEAL OEDEMA [None]
  - SWELLING FACE [None]
